FAERS Safety Report 10297406 (Version 2)
Quarter: 2014Q3

REPORT INFORMATION
  Report Type: Spontaneous
  Country: US (occurrence: US)
  Receive Date: 20140711
  Receipt Date: 20140723
  Transmission Date: 20150326
  Serious: Yes (Other)
  Sender: FDA-Public Use
  Company Number: US-TEVA-493077USA

PATIENT
  Sex: Female

DRUGS (1)
  1. CLARAVIS [Suspect]
     Active Substance: ISOTRETINOIN
     Indication: ACNE
     Dosage: 20 MG AND 40 MG
     Dates: start: 20140624, end: 20140703

REACTIONS (14)
  - Major depression [Unknown]
  - Confusional state [Unknown]
  - Hypoaesthesia [Unknown]
  - Dyspnoea [Unknown]
  - Arthralgia [Unknown]
  - Hyperhidrosis [Unknown]
  - Abdominal pain upper [Unknown]
  - Paraesthesia [Unknown]
  - Dizziness [Unknown]
  - Pain [Unknown]
  - Gait disturbance [Unknown]
  - Alopecia [Unknown]
  - Panic attack [Unknown]
  - Headache [Unknown]
